FAERS Safety Report 13780401 (Version 1)
Quarter: 2017Q3

REPORT INFORMATION
  Report Type: Spontaneous
  Country: JP (occurrence: JP)
  Receive Date: 20170724
  Receipt Date: 20170724
  Transmission Date: 20171127
  Serious: Yes (Hospitalization, Other)
  Sender: FDA-Public Use
  Company Number: JP-009507513-1707JPN008771

PATIENT
  Age: 41 Year
  Sex: Male

DRUGS (3)
  1. LORAZEPAM. [Concomitant]
     Active Substance: LORAZEPAM
     Dosage: 6 MG/DAY
     Route: 048
  2. LORAZEPAM. [Concomitant]
     Active Substance: LORAZEPAM
     Indication: DEPRESSION
     Dosage: 1 MG/DAY
     Route: 048
  3. REMERON [Suspect]
     Active Substance: MIRTAZAPINE
     Indication: DEPRESSION
     Dosage: DAILY DOSE: 15 MG
     Route: 048

REACTIONS (10)
  - Renal impairment [Unknown]
  - Muscle tightness [Unknown]
  - Catatonia [Unknown]
  - Blood urine present [Unknown]
  - Hypercreatinaemia [Unknown]
  - Protein urine present [Unknown]
  - Pyrexia [Unknown]
  - Hyperhidrosis [Unknown]
  - Myoglobinuria [Unknown]
  - Hepatic function abnormal [Unknown]
